FAERS Safety Report 8113082-0 (Version None)
Quarter: 2012Q1

REPORT INFORMATION
  Report Type: 
  Country: None (occurrence: None)
  Receive Date: 20120203
  Receipt Date: 20120125
  Transmission Date: 20120608
  Serious: Yes (Other)
  Sender: FDA-Public Use
  Company Number: AU-GLAXOSMITHKLINE-B0778726A

PATIENT
  Age: 33 Year
  Sex: Female

DRUGS (1)
  1. ONDANSETRON HCL [Suspect]
     Indication: HYPEREMESIS GRAVIDARUM
     Dosage: 8MG TWICE PER DAY
     Route: 065

REACTIONS (3)
  - UTERINE DILATION AND CURETTAGE [None]
  - MATERNAL EXPOSURE DURING PREGNANCY [None]
  - ABORTION SPONTANEOUS [None]
